FAERS Safety Report 7588432-4 (Version None)
Quarter: 2011Q3

REPORT INFORMATION
  Report Type: 
  Country: None (occurrence: None)
  Receive Date: 20110705
  Receipt Date: 20110613
  Transmission Date: 20111222
  Serious: Yes (Hospitalization, Other)
  Sender: FDA-Public Use
  Company Number: US-BAYER-2011-018310

PATIENT
  Age: 40 Year
  Sex: Female
  Weight: 61 kg

DRUGS (8)
  1. TEGRETOL [Concomitant]
     Indication: CONVULSION
     Dosage: 200 MG, UNK
     Route: 048
  2. PERCOCET [Concomitant]
     Indication: PAIN
     Dosage: UNK UNK, PRN
  3. YASMIN [Suspect]
     Indication: CONTRACEPTION
     Dosage: UNK
     Dates: start: 20040821, end: 20080801
  4. CLONAZEPAM [Concomitant]
     Indication: CONVULSION
     Dosage: 0.5 MG, BID
     Route: 048
     Dates: start: 20050401
  5. ORTHO TRI-CYCLEN LO [Concomitant]
     Dosage: UNK
     Dates: start: 20080801, end: 20080901
  6. FLEXERIL [Concomitant]
     Indication: MUSCLE RELAXANT THERAPY
     Dosage: 10 MG, PRN
  7. NABUMETONE [Concomitant]
     Indication: INFLAMMATION
     Dosage: 500 MG, PRN
     Route: 048
  8. ALLEGRA [Concomitant]
     Indication: SEASONAL ALLERGY
     Dosage: 180 MG, PRN
     Route: 048

REACTIONS (2)
  - CHOLELITHIASIS [None]
  - GALLBLADDER DISORDER [None]
